FAERS Safety Report 19120729 (Version 1)
Quarter: 2021Q2

REPORT INFORMATION
  Report Type: Spontaneous
  Country: US (occurrence: US)
  Receive Date: 20210411
  Receipt Date: 20210411
  Transmission Date: 20210717
  Serious: Yes (Hospitalization)
  Sender: FDA-Public Use
  Company Number: None

PATIENT
  Sex: Male
  Weight: 84.6 kg

DRUGS (15)
  1. AMLODIPINE [Concomitant]
     Active Substance: AMLODIPINE BESYLATE
  2. LISINOPRIL. [Concomitant]
     Active Substance: LISINOPRIL
  3. GLIPIZIDE. [Concomitant]
     Active Substance: GLIPIZIDE
  4. LEUKERAN [Suspect]
     Active Substance: CHLORAMBUCIL
     Indication: LYMPHOCYTIC LEUKAEMIA
     Dates: start: 20190207
  5. ATORVASTATIN [Concomitant]
     Active Substance: ATORVASTATIN
  6. SPIRONOLACTONE. [Concomitant]
     Active Substance: SPIRONOLACTONE
  7. TAMSULOSIN [Concomitant]
     Active Substance: TAMSULOSIN
  8. DOXYCYCLINE. [Concomitant]
     Active Substance: DOXYCYCLINE
  9. FUROSEMIDE. [Concomitant]
     Active Substance: FUROSEMIDE
  10. LEVAQUIN [Concomitant]
     Active Substance: LEVOFLOXACIN
  11. WARFARIN [Concomitant]
     Active Substance: WARFARIN
  12. ALLOPURINOL. [Concomitant]
     Active Substance: ALLOPURINOL
  13. NOVOLIN R [Concomitant]
     Active Substance: INSULIN HUMAN
  14. TYLENOL [Concomitant]
     Active Substance: ACETAMINOPHEN
  15. DIGOXIN. [Concomitant]
     Active Substance: DIGOXIN

REACTIONS (1)
  - Hospitalisation [None]
